FAERS Safety Report 16691724 (Version 4)
Quarter: 2019Q3

REPORT INFORMATION
  Report Type: Spontaneous
  Country: FR (occurrence: FR)
  Receive Date: 20190812
  Receipt Date: 20190927
  Transmission Date: 20191004
  Serious: Yes (Life-Threatening, Other)
  Sender: FDA-Public Use
  Company Number: FR-AUROBINDO-AUR-APL-2019-052153

PATIENT
  Age: 85 Year
  Sex: Male
  Weight: 75 kg

DRUGS (11)
  1. LEVOTHYROX [Suspect]
     Active Substance: LEVOTHYROXINE
     Indication: PRODUCT USED FOR UNKNOWN INDICATION
     Dosage: 125 MICROGRAM, FOUR TIMES/DAY (500 MICROGRAM QD)
     Route: 048
     Dates: end: 20190701
  2. INSPRA [Suspect]
     Active Substance: EPLERENONE
     Indication: PRODUCT USED FOR UNKNOWN INDICATION
     Dosage: 100 MILLIGRAM, IN TOTAL,QUANTITY SUPPOSED TO BE INGESTED: 4 CP
     Route: 048
     Dates: start: 20190701, end: 20190701
  3. TAHOR [Suspect]
     Active Substance: ATORVASTATIN CALCIUM
     Indication: PRODUCT USED FOR UNKNOWN INDICATION
     Dosage: 40 MILLIGRAM, IN TOTAL
     Route: 048
     Dates: start: 20190701, end: 20190701
  4. MELATONINE [Suspect]
     Active Substance: MELATONIN
     Indication: PRODUCT USED FOR UNKNOWN INDICATION
     Dosage: 12 MILLIGRAM, FOUR TIMES/DAY (48 MG)
     Route: 048
     Dates: start: 20190701, end: 20190701
  5. MIANSERIN FILM-COATED TABLET 60MG [Suspect]
     Active Substance: MIANSERIN
     Indication: PRODUCT USED FOR UNKNOWN INDICATION
     Dosage: 120 MILLIGRAM, IN TOTAL, INTENDED QUALITY INGESTED: 4 TABLETS OF 30MG
     Route: 048
     Dates: start: 20190701, end: 20190701
  6. RAMIPRIL. [Suspect]
     Active Substance: RAMIPRIL
     Indication: PRODUCT USED FOR UNKNOWN INDICATION
     Dosage: 20 MILLIGRAM, DAILY
     Route: 048
     Dates: start: 20190701, end: 20190701
  7. CORDARONE [Suspect]
     Active Substance: AMIODARONE HYDROCHLORIDE
     Indication: PRODUCT USED FOR UNKNOWN INDICATION
     Dosage: 800 MILLIGRAM, IN TOTAL, QUANTITY SUPPOSEDLY INGESTED: 4 CP OF 200 MG
     Route: 048
     Dates: start: 20190701, end: 20190701
  8. BISOPROLOL TABLETS [Suspect]
     Active Substance: BISOPROLOL
     Indication: PRODUCT USED FOR UNKNOWN INDICATION
     Dosage: 20 MILLIGRAM, IN TOTAL,DOSE PRESUMED TO BE INGESTED: 4 MG OF 5 MG
     Route: 048
     Dates: start: 20190701, end: 20190701
  9. KARDEGIC [Suspect]
     Active Substance: ASPIRIN DL-LYSINE
     Indication: PRODUCT USED FOR UNKNOWN INDICATION
     Dosage: 300 MILLIGRAM, IN TOTAL, AMOUNT INGESTED SUPPOSED: 4 BAGS OF 75 MG
     Route: 048
     Dates: start: 20190701, end: 20190701
  10. IMOVANE [Suspect]
     Active Substance: ZOPICLONE
     Indication: PRODUCT USED FOR UNKNOWN INDICATION
     Dosage: 7.5 MILLIGRAM, FOUR TIMES/DAY (30 MG TOTAL)
     Route: 048
     Dates: start: 20190701, end: 20190701
  11. INEXIUM [Suspect]
     Active Substance: ESOMEPRAZOLE
     Indication: PRODUCT USED FOR UNKNOWN INDICATION
     Dosage: 80 MILLIGRAM, IN TOTAL,INTENDED QUANTITY INGESTED: 4 TABLETS OF 20 MG
     Route: 048
     Dates: start: 20190701, end: 20190701

REACTIONS (5)
  - Cardiogenic shock [Recovered/Resolved]
  - Bradycardia [Recovered/Resolved]
  - Poisoning deliberate [Recovered/Resolved]
  - Hypoglycaemia [Recovered/Resolved]
  - Overdose [Unknown]

NARRATIVE: CASE EVENT DATE: 20190701
